FAERS Safety Report 26169787 (Version 1)
Quarter: 2025Q4

REPORT INFORMATION
  Report Type: Spontaneous
  Country: US (occurrence: None)
  Receive Date: 20251216
  Receipt Date: 20251216
  Transmission Date: 20260119
  Serious: Yes (Other)
  Sender: FDA-CTU
  Company Number: None

PATIENT
  Age: 68 Year
  Sex: Female
  Weight: 80.1 kg

DRUGS (2)
  1. ACETAMINOPHEN\OXYCODONE HYDROCHLORIDE [Suspect]
     Active Substance: ACETAMINOPHEN\OXYCODONE HYDROCHLORIDE
     Indication: Spinal stenosis
     Dosage: 1 DF DOSAGE FORM 4 TIMES A DAY ORAL
     Route: 048
  2. OXYCOD/APAP 5/325 [Concomitant]
     Dates: start: 20250121, end: 20251213

REACTIONS (6)
  - Weight increased [None]
  - Eye pruritus [None]
  - Skin discolouration [None]
  - Swelling face [None]
  - Peripheral swelling [None]
  - Therapy cessation [None]

NARRATIVE: CASE EVENT DATE: 20251213
